FAERS Safety Report 25137905 (Version 2)
Quarter: 2025Q3

REPORT INFORMATION
  Report Type: Spontaneous
  Country: IL (occurrence: IL)
  Receive Date: 20250329
  Receipt Date: 20250826
  Transmission Date: 20251021
  Serious: Yes (Death, Hospitalization, Other)
  Sender: UNITED THERAPEUTICS
  Company Number: IL-UNITED THERAPEUTICS-UNT-2025-009837

PATIENT
  Age: 67 Year
  Sex: Male
  Weight: 100 kg

DRUGS (7)
  1. TYVASO [Suspect]
     Active Substance: TREPROSTINIL
     Indication: Pulmonary arterial hypertension
     Dosage: 72 ?G, QID
     Dates: end: 202503
  2. TYVASO [Suspect]
     Active Substance: TREPROSTINIL
  3. TYVASO [Suspect]
     Active Substance: TREPROSTINIL
  4. BISOPROLOL FUMARATE [Concomitant]
     Active Substance: BISOPROLOL FUMARATE
     Indication: Product used for unknown indication
  5. SILDENAFIL [Concomitant]
     Active Substance: SILDENAFIL
     Indication: Pulmonary arterial hypertension
  6. OPSUMIT [Concomitant]
     Active Substance: MACITENTAN
     Indication: Product used for unknown indication
  7. Mononit [Concomitant]
     Indication: Product used for unknown indication

REACTIONS (8)
  - Death [Fatal]
  - Ascites [Unknown]
  - Post procedural infection [Unknown]
  - Fungaemia [Unknown]
  - Condition aggravated [Unknown]
  - Respiratory disorder [Recovering/Resolving]
  - Cough [Recovered/Resolved with Sequelae]
  - Headache [Not Recovered/Not Resolved]

NARRATIVE: CASE EVENT DATE: 20241201
